FAERS Safety Report 10552715 (Version 1)
Quarter: 2014Q4

REPORT INFORMATION
  Report Type: Spontaneous
  Country: US (occurrence: US)
  Receive Date: 20141029
  Receipt Date: 20141029
  Transmission Date: 20150529
  Serious: Yes (Other)
  Sender: FDA-Public Use
  Company Number: US-ASTRAZENECA-2014SE80505

PATIENT
  Age: 71 Year
  Sex: Male
  Weight: 74.4 kg

DRUGS (16)
  1. CLONAZEPAM. [Concomitant]
     Active Substance: CLONAZEPAM
     Route: 048
  2. PHENYTOIN. [Concomitant]
     Active Substance: PHENYTOIN
     Indication: NEOPLASM MALIGNANT
     Route: 048
     Dates: start: 1974
  3. ATORVASTATIN [Concomitant]
     Active Substance: ATORVASTATIN
     Indication: ASTHMA
     Route: 048
  4. SYMBICORT [Suspect]
     Active Substance: BUDESONIDE\FORMOTEROL FUMARATE DIHYDRATE
     Indication: CHRONIC OBSTRUCTIVE PULMONARY DISEASE
     Dosage: 160/4.5 MCG, TWO TIMES A DAY
     Route: 055
  5. NEXIUM [Suspect]
     Active Substance: ESOMEPRAZOLE MAGNESIUM
     Indication: GASTROOESOPHAGEAL REFLUX DISEASE
     Route: 048
     Dates: start: 1993, end: 20141020
  6. ASPIRIN. [Concomitant]
     Active Substance: ASPIRIN
     Indication: ANGIOPLASTY
     Route: 048
     Dates: start: 1992
  7. CITALOPRAM [Concomitant]
     Active Substance: CITALOPRAM HYDROBROMIDE
     Route: 048
  8. ALPRAZOLAM. [Concomitant]
     Active Substance: ALPRAZOLAM
     Indication: NERVOUS SYSTEM DISORDER
     Route: 048
     Dates: start: 1974
  9. NASAL SPRAY [Concomitant]
     Active Substance: UNSPECIFIED INGREDIENT
     Indication: DYSPNOEA
     Dosage: 40 MCG, 2 SPRAYS PER NOSTRIL, AS REQUIRED
     Route: 045
  10. NITROGLYCERIN. [Concomitant]
     Active Substance: NITROGLYCERIN
     Indication: CHEST PAIN
     Dates: start: 1992
  11. CARVEDILOL. [Concomitant]
     Active Substance: CARVEDILOL
     Route: 048
  12. HYDROCODONE [Concomitant]
     Active Substance: HYDROCODONE
     Indication: PAIN
     Dosage: 5 MG, AS REQUIRED, EVERTY 4 YEARS
     Route: 048
     Dates: start: 1974
  13. PANTOPRAZOLE [Concomitant]
     Active Substance: PANTOPRAZOLE SODIUM
     Indication: GASTROOESOPHAGEAL REFLUX DISEASE
     Route: 048
  14. FOLIC ACID. [Concomitant]
     Active Substance: FOLIC ACID
     Route: 048
  15. FUROSEMIDE. [Concomitant]
     Active Substance: FUROSEMIDE
     Route: 048
  16. PROAIR HFA [Concomitant]
     Active Substance: ALBUTEROL SULFATE
     Route: 055

REACTIONS (3)
  - Sleep apnoea syndrome [Unknown]
  - Tongue disorder [Unknown]
  - Neoplasm malignant [Unknown]

NARRATIVE: CASE EVENT DATE: 2012
